FAERS Safety Report 20517612 (Version 1)
Quarter: 2022Q1

REPORT INFORMATION
  Report Type: Spontaneous
  Country: US (occurrence: None)
  Receive Date: 20220225
  Receipt Date: 20220225
  Transmission Date: 20220424
  Serious: No
  Sender: FDA-Public Use
  Company Number: 2022A082291

PATIENT
  Sex: Male

DRUGS (1)
  1. PRILOSEC OTC [Suspect]
     Active Substance: OMEPRAZOLE MAGNESIUM
     Indication: Gastrooesophageal reflux disease
     Dosage: 2 CAPSUL, DAILY (FOR YEARS)
     Route: 048

REACTIONS (5)
  - Pain in extremity [Unknown]
  - Product package associated injury [Unknown]
  - Overdose [Unknown]
  - Incorrect product administration duration [Unknown]
  - Product blister packaging issue [Unknown]
